FAERS Safety Report 13586822 (Version 1)
Quarter: 2017Q2

REPORT INFORMATION
  Report Type: Spontaneous
  Country: US (occurrence: US)
  Receive Date: 20170526
  Receipt Date: 20170526
  Transmission Date: 20170830
  Serious: No
  Sender: FDA-Public Use
  Company Number: US-ROCHE-1066297

PATIENT
  Sex: Female

DRUGS (2)
  1. VALCYTE [Suspect]
     Active Substance: VALGANCICLOVIR HYDROCHLORIDE
     Indication: EPSTEIN-BARR VIRUS INFECTION
     Route: 065
  2. VALCYTE [Suspect]
     Active Substance: VALGANCICLOVIR HYDROCHLORIDE
     Route: 065

REACTIONS (5)
  - Road traffic accident [Unknown]
  - Fatigue [Unknown]
  - No adverse event [Unknown]
  - Epstein-Barr virus infection [Unknown]
  - Influenza like illness [Unknown]

NARRATIVE: CASE EVENT DATE: 20120225
